FAERS Safety Report 18413273 (Version 1)
Quarter: 2020Q4

REPORT INFORMATION
  Report Type: Report from Study
  Country: PT (occurrence: PT)
  Receive Date: 20201021
  Receipt Date: 20201021
  Transmission Date: 20210114
  Serious: Yes (Other)
  Sender: FDA-Public Use
  Company Number: PT-ASTRAZENECA-2020SF35209

PATIENT
  Age: 1853 Day
  Sex: Male
  Weight: 17 kg

DRUGS (1)
  1. SELUMETINIB. [Suspect]
     Active Substance: SELUMETINIB
     Indication: NEUROFIBROMA
     Dosage: BATCH AUTHORIZATION: 20816.15/1 (6 INTO 10 MG)
     Route: 048
     Dates: start: 20200117

REACTIONS (2)
  - Urticaria papular [Recovered/Resolved]
  - Penile erythema [Recovering/Resolving]

NARRATIVE: CASE EVENT DATE: 20200706
